FAERS Safety Report 6100238-1 (Version None)
Quarter: 2009Q1

REPORT INFORMATION
  Report Type: 
  Country: None (occurrence: None)
  Receive Date: 20090303
  Receipt Date: 20090225
  Transmission Date: 20090719
  Serious: Yes (Other)
  Sender: FDA-Public Use
  Company Number: CN-JNJFOC-20080206883

PATIENT
  Sex: Female

DRUGS (2)
  1. GYNO-DAKTARIN [Suspect]
     Route: 067
  2. GYNO-DAKTARIN [Suspect]
     Indication: VAGINAL INFECTION
     Route: 067

REACTIONS (2)
  - DRUG EXPOSURE DURING PREGNANCY [None]
  - INTRA-UTERINE DEATH [None]
